FAERS Safety Report 9143569 (Version 2)
Quarter: 2013Q1

REPORT INFORMATION
  Report Type: Report from Study
  Country: FR (occurrence: FR)
  Receive Date: 20130306
  Receipt Date: 20130314
  Transmission Date: 20140127
  Serious: Yes (Disabling)
  Sender: FDA-Public Use
  Company Number: FR-ROCHE-1194138

PATIENT
  Age: 8 Year
  Sex: Male

DRUGS (2)
  1. SOMATROPIN [Suspect]
     Indication: GROWTH HORMONE DEFICIENCY
     Route: 065
     Dates: start: 20070215, end: 20110225
  2. SOMATROPIN [Suspect]
     Route: 065
     Dates: start: 20120512

REACTIONS (2)
  - Asthenopia [Not Recovered/Not Resolved]
  - Strabismus [Not Recovered/Not Resolved]
